FAERS Safety Report 9539429 (Version 1)
Quarter: 2013Q2

REPORT INFORMATION
  Report Type: Spontaneous
  Country: US (occurrence: None)
  Receive Date: 20130507
  Receipt Date: 20130507
  Transmission Date: 20140414
  Serious: No
  Sender: FDA-Public Use
  Company Number: PHEH2013US004269

PATIENT
  Age: 23 Year
  Sex: Male

DRUGS (4)
  1. AFINITOR [Suspect]
     Indication: TUBEROUS SCLEROSIS
     Dates: start: 201209
  2. KEPPRA (LEVETIRACETAM) [Concomitant]
  3. LAMICTAL (LAMOTRIGINE) [Concomitant]
  4. SAVEROL (SAVEROL) [Concomitant]

REACTIONS (1)
  - Blood cholesterol increased [None]
